FAERS Safety Report 5144334-4 (Version None)
Quarter: 2006Q4

REPORT INFORMATION
  Report Type: 
  Country: None (occurrence: None)
  Receive Date: 20061030
  Receipt Date: 20061017
  Transmission Date: 20070319
  Serious: Yes (Hospitalization)
  Sender: FDA-Public Use
  Company Number: US200610003055

PATIENT
  Age: 90 Year
  Sex: Female

DRUGS (4)
  1. FORTEO [Suspect]
     Indication: OSTEOPOROSIS
     Dosage: 20 UG
     Dates: start: 20060101
  2. FORTEO PEN (FORTEO PEN))PEN, DISPOSABLE [Concomitant]
  3. MIACALCIN [Concomitant]
  4. FOSAMAX [Concomitant]

REACTIONS (3)
  - CONTUSION [None]
  - FALL [None]
  - WALKING AID USER [None]
